FAERS Safety Report 8960122 (Version 1)
Quarter: 2012Q4

REPORT INFORMATION
  Report Type: 
  Country: JP (occurrence: JP)
  Receive Date: 20121211
  Receipt Date: 20121211
  Transmission Date: 20130627
  Serious: Yes (Death)
  Sender: FDA-Public Use
  Company Number: JP-GLAXOSMITHKLINE-B0850569A

PATIENT
  Age: 44 Year
  Sex: Male

DRUGS (3)
  1. AMERGE [Suspect]
     Indication: MIGRAINE
     Route: 048
     Dates: start: 20121027, end: 20121105
  2. AMERGE [Suspect]
     Indication: MIGRAINE
     Route: 048
     Dates: start: 20121203, end: 20121203
  3. CYSVON [Suspect]
     Route: 048
     Dates: start: 20121203, end: 20121203

REACTIONS (3)
  - Completed suicide [Fatal]
  - Overdose [Unknown]
  - Intentional overdose [None]
